FAERS Safety Report 8943640 (Version 3)
Quarter: 2013Q4

REPORT INFORMATION
  Report Type: Report from Study
  Country: FR (occurrence: FR)
  Receive Date: 20121204
  Receipt Date: 20131202
  Transmission Date: 20140711
  Serious: Yes (Life-Threatening, Hospitalization)
  Sender: FDA-Public Use
  Company Number: PHHO2012FR017320

PATIENT
  Age: 60 Year
  Sex: Male

DRUGS (5)
  1. AMN107 [Suspect]
     Indication: CHRONIC MYELOID LEUKAEMIA
     Dosage: 300 MG, BID
     Route: 048
     Dates: start: 20101116, end: 20121101
  2. AMN107 [Suspect]
     Dosage: NO TREATMENT
     Dates: start: 20121102, end: 20121112
  3. AMN107 [Suspect]
     Dosage: 300 MG, BID
     Route: 048
     Dates: start: 20121113, end: 20121121
  4. COZAAR [Concomitant]
     Indication: CEREBROVASCULAR ACCIDENT PROPHYLAXIS
     Dosage: 25 MG, QD
     Dates: start: 199705, end: 20121121
  5. LOSARTAN [Concomitant]

REACTIONS (1)
  - Coronary artery thrombosis [Recovered/Resolved with Sequelae]
